FAERS Safety Report 8452697-7 (Version None)
Quarter: 2012Q2

REPORT INFORMATION
  Report Type: 
  Country: None (occurrence: None)
  Receive Date: 20120620
  Receipt Date: 20120618
  Transmission Date: 20120825
  Serious: Yes (Other)
  Sender: FDA-Public Use
  Company Number: PHEH2012US006817

PATIENT
  Sex: Female

DRUGS (9)
  1. ADIPEX [Concomitant]
     Dosage: UNK UKN, UNK
     Route: 048
     Dates: end: 20120101
  2. LORTAB [Concomitant]
     Dosage: UNK UKN, UNK
  3. TRAZODONE HCL [Concomitant]
     Dosage: UNK UKN, UNK
     Route: 048
     Dates: end: 20120201
  4. DOXYCLINE ^KALBE FARMA^ [Concomitant]
     Dosage: UNK UKN, UNK
     Route: 048
     Dates: end: 20120201
  5. KEPPRA [Concomitant]
     Dosage: 1000 MG, BID
     Route: 048
     Dates: end: 20120101
  6. ATIVAN [Concomitant]
     Dosage: UNK UKN, UNK
     Route: 048
     Dates: end: 20120101
  7. GILENYA [Suspect]
     Indication: MULTIPLE SCLEROSIS
     Dosage: 0.5 MG, PER DAY
     Route: 048
     Dates: start: 20110324, end: 20120213
  8. GABAPENTIN [Concomitant]
     Dosage: UNK UKN, UNK
     Route: 048
     Dates: start: 20120201
  9. CONTRACEPTIVES [Concomitant]
     Dosage: UNK UKN, UNK
     Route: 048

REACTIONS (2)
  - COMPLEX PARTIAL SEIZURES [None]
  - MATERNAL EXPOSURE DURING PREGNANCY [None]
